FAERS Safety Report 6562742-1 (Version None)
Quarter: 2010Q1

REPORT INFORMATION
  Report Type: 
  Country: None (occurrence: None)
  Receive Date: 20100130
  Receipt Date: 20091120
  Transmission Date: 20100710
  Serious: No
  Sender: FDA-Public Use
  Company Number: US-ABBOTT-09P-163-0610102-00

PATIENT
  Sex: Female
  Weight: 69.008 kg

DRUGS (7)
  1. HUMIRA [Suspect]
     Indication: RHEUMATOID ARTHRITIS
     Route: 058
     Dates: start: 20070301, end: 20080310
  2. HUMIRA [Suspect]
     Dates: start: 20080310
  3. METHOTREXATE [Concomitant]
     Indication: OSTEOPOROSIS
     Dosage: 3 PILLS PER WEEK
     Dates: start: 20090310
  4. ASPIRIN [Concomitant]
     Indication: DRUG USE FOR UNKNOWN INDICATION
  5. ACTONEL [Concomitant]
     Indication: DRUG USE FOR UNKNOWN INDICATION
  6. FOLIC ACID [Concomitant]
     Indication: DRUG USE FOR UNKNOWN INDICATION
  7. CITROCAL [Concomitant]
     Indication: DRUG USE FOR UNKNOWN INDICATION

REACTIONS (3)
  - ARTHRITIS [None]
  - BACK PAIN [None]
  - JOINT SWELLING [None]
